FAERS Safety Report 4429880-0 (Version None)
Quarter: 2004Q3

REPORT INFORMATION
  Report Type: 
  Country: None (occurrence: None)
  Receive Date: 20040817
  Receipt Date: 20040809
  Transmission Date: 20050211
  Serious: Yes (Hospitalization)
  Sender: FDA-Public Use
  Company Number: US-JNJFOC-20040700884

PATIENT
  Age: 50 Year
  Sex: Male

DRUGS (5)
  1. MOTRIN [Suspect]
     Indication: HEADACHE
     Dosage: 1-2 DAILY PRN
     Dates: start: 20040101, end: 20040601
  2. MOTRIN [Suspect]
     Indication: SINUS CONGESTION
     Dosage: 1-2 DAILY PRN
     Dates: start: 20040101, end: 20040601
  3. VITAMIN C (ASCORBIC ACID) [Concomitant]
  4. VITAMIN A [Concomitant]
  5. ZINC (ZINC) [Concomitant]

REACTIONS (3)
  - BLOOD PRESSURE DIASTOLIC INCREASED [None]
  - CHEST PAIN [None]
  - DIZZINESS [None]
